FAERS Safety Report 19117832 (Version 8)
Quarter: 2021Q4

REPORT INFORMATION
  Report Type: Report from Study
  Country: FR (occurrence: FR)
  Receive Date: 20210409
  Receipt Date: 20211130
  Transmission Date: 20220303
  Serious: Yes (Life-Threatening)
  Sender: FDA-Public Use
  Company Number: FR-JCAR017-FOL-001-2521002-20210406-0001SG

PATIENT
  Age: 67 Year
  Sex: Male
  Weight: 84 kg

DRUGS (14)
  1. LISOCABTAGENE MARALEUCEL [Suspect]
     Active Substance: LISOCABTAGENE MARALEUCEL
     Indication: Follicular lymphoma
     Dosage: 100 X 10^6 CAR+ T CELLS X ONCE
     Route: 042
     Dates: start: 20210401, end: 20210401
  2. CYCLOPHOSPHAMIDE [Suspect]
     Active Substance: CYCLOPHOSPHAMIDE
     Indication: Follicular lymphoma
     Dosage: 612 MG X 1 X 1 DAYS
     Route: 042
     Dates: start: 20210327, end: 20210327
  3. CYCLOPHOSPHAMIDE [Suspect]
     Active Substance: CYCLOPHOSPHAMIDE
     Dosage: 612 MG X 1 X 1 DAYS
     Route: 042
     Dates: start: 20210328, end: 20210328
  4. CYCLOPHOSPHAMIDE [Suspect]
     Active Substance: CYCLOPHOSPHAMIDE
     Dosage: 612 MG X 1 X 1 DAYS
     Route: 042
     Dates: start: 20210329, end: 20210329
  5. FLUDARABINE [Suspect]
     Active Substance: FLUDARABINE PHOSPHATE
     Indication: Follicular lymphoma
     Dosage: 61.25 MG X 1 X 1 DAYS
     Route: 042
     Dates: start: 20210327, end: 20210327
  6. FLUDARABINE [Suspect]
     Active Substance: FLUDARABINE PHOSPHATE
     Dosage: 61.25 MG X 1 X 1 DAYS
     Route: 042
     Dates: start: 20210328, end: 20210328
  7. FLUDARABINE [Suspect]
     Active Substance: FLUDARABINE PHOSPHATE
     Dosage: 61.25 MG X 1 X 1 DAYS
     Route: 042
     Dates: start: 20210329, end: 20210329
  8. BISOPROLOL [Concomitant]
     Active Substance: BISOPROLOL
     Indication: Congestive cardiomyopathy
     Dosage: 1.25 MG X 1 X 1 DAYS
     Route: 048
  9. ENTRESTO [Concomitant]
     Active Substance: SACUBITRIL\VALSARTAN
     Indication: Congestive cardiomyopathy
     Dosage: 49/51 MG X 2 X 1 DAYS
     Route: 048
  10. INSPRA [Concomitant]
     Active Substance: EPLERENONE
     Indication: Congestive cardiomyopathy
     Dosage: 25 MG X 1 X 1 DAYS
     Route: 048
     Dates: start: 2017
  11. KARDEGIC [Concomitant]
     Active Substance: ASPIRIN DL-LYSINE
     Indication: Congestive cardiomyopathy
     Dosage: 75 MG X 1 X 1 DAYS
     Route: 048
  12. FUROSEMIDE [Concomitant]
     Active Substance: FUROSEMIDE
     Indication: Hypertension
     Dosage: 40 MG X 1 X 1 DAYS
     Route: 048
     Dates: start: 2014, end: 20210405
  13. FUROSEMIDE [Concomitant]
     Active Substance: FUROSEMIDE
     Dosage: 40 MG X 1 X 1 DAYS
     Route: 048
     Dates: start: 20210412
  14. NEURONTIN [Concomitant]
     Active Substance: GABAPENTIN
     Indication: Neuropathy peripheral
     Dosage: 800 MG X 3 X 1 DAYS
     Route: 048

REACTIONS (1)
  - Cytokine release syndrome [Recovered/Resolved]

NARRATIVE: CASE EVENT DATE: 20210405
